FAERS Safety Report 19253357 (Version 1)
Quarter: 2021Q2

REPORT INFORMATION
  Report Type: Spontaneous
  Country: US (occurrence: US)
  Receive Date: 20210512
  Receipt Date: 20210512
  Transmission Date: 20210717
  Serious: Yes (Other)
  Sender: FDA-Public Use
  Company Number: None

PATIENT
  Age: 22 Year
  Sex: Female
  Weight: 101.15 kg

DRUGS (8)
  1. NEXPLANON [Suspect]
     Active Substance: ETONOGESTREL
     Dates: end: 20210506
  2. MELATONIN [Concomitant]
     Active Substance: MELATONIN
  3. TYLENOL [Concomitant]
     Active Substance: ACETAMINOPHEN
  4. PEPTO?BISMOL [Concomitant]
     Active Substance: BISMUTH SUBSALICYLATE
  5. MUCINEX [Concomitant]
     Active Substance: GUAIFENESIN
  6. IBUPROFEN. [Concomitant]
     Active Substance: IBUPROFEN
  7. ANTACID [Concomitant]
     Active Substance: ALUMINUM HYDROXIDE\CALCIUM CARBONATE\DIMETHICONE\MAGNESIUM HYDROXIDE
  8. GENERIC ALLERGY RELIEF PILLS [Concomitant]

REACTIONS (10)
  - Vomiting [None]
  - Dizziness [None]
  - Asthenia [None]
  - Illness [None]
  - Abdominal pain upper [None]
  - Uterine spasm [None]
  - Tremor [None]
  - Headache [None]
  - Complication of device removal [None]
  - Nausea [None]

NARRATIVE: CASE EVENT DATE: 20210509
